FAERS Safety Report 5006940-7 (Version None)
Quarter: 2006Q2

REPORT INFORMATION
  Report Type: 
  Country: None (occurrence: None)
  Receive Date: 20060517
  Receipt Date: 20060508
  Transmission Date: 20061013
  Serious: Yes (Hospitalization)
  Sender: FDA-Public Use
  Company Number: 2006061085

PATIENT
  Age: 23 Year
  Sex: Male

DRUGS (1)
  1. ACTIFED [Suspect]
     Indication: RHINITIS
     Dosage: 1 UNIT, ONCE, ORAL
     Route: 048
     Dates: start: 20060501, end: 20060501

REACTIONS (4)
  - HAEMATOCHEZIA [None]
  - PETECHIAE [None]
  - POLYARTHRITIS [None]
  - PROTEINURIA [None]
